FAERS Safety Report 25428019 (Version 1)
Quarter: 2025Q2

REPORT INFORMATION
  Report Type: Spontaneous
  Country: US (occurrence: None)
  Receive Date: 20250612
  Receipt Date: 20250612
  Transmission Date: 20250717
  Serious: Yes (Hospitalization)
  Sender: FDA-CTU
  Company Number: None

PATIENT
  Age: 79 Year
  Sex: Male
  Weight: 72.1 kg

DRUGS (2)
  1. DARATUMUMAB [Suspect]
     Active Substance: DARATUMUMAB
  2. DEXAMETHASONE [Suspect]
     Active Substance: DEXAMETHASONE

REACTIONS (7)
  - Nausea [None]
  - Hyperhidrosis [None]
  - Pallor [None]
  - Loss of consciousness [None]
  - Cough [None]
  - Pain in extremity [None]
  - Syncope [None]

NARRATIVE: CASE EVENT DATE: 20250525
